FAERS Safety Report 11620152 (Version 2)
Quarter: 2015Q4

REPORT INFORMATION
  Report Type: Spontaneous
  Country: US (occurrence: US)
  Receive Date: 20151012
  Receipt Date: 20151015
  Transmission Date: 20160304
  Serious: No
  Sender: FDA-Public Use
  Company Number: US-SA-2015SA126846

PATIENT
  Age: 72 Year
  Sex: Male

DRUGS (1)
  1. AFREZZA [Suspect]
     Active Substance: INSULIN HUMAN
     Indication: BLOOD GLUCOSE DECREASED
     Dosage: ROUTE: INHALATION DOSE:4 UNIT(S)
     Dates: start: 20150817, end: 20150817

REACTIONS (2)
  - Depression [Unknown]
  - Paranoia [Recovered/Resolved]
